FAERS Safety Report 5040037-5 (Version None)
Quarter: 2006Q2

REPORT INFORMATION
  Report Type: 
  Country: None (occurrence: None)
  Receive Date: 20060601
  Receipt Date: 20060105
  Transmission Date: 20061013
  Serious: No
  Sender: FDA-Public Use
  Company Number: 2006PV006625

PATIENT
  Age: 81 Year
  Sex: Female
  Weight: 73.0291 kg

DRUGS (7)
  1. BYETTA [Suspect]
     Indication: DIABETES MELLITUS NON-INSULIN-DEPENDENT
     Dosage: 5 MCG;BID
     Dates: start: 20050827, end: 20051021
  2. ASPIRIN [Concomitant]
  3. INSULIN [Concomitant]
  4. AMARYL [Concomitant]
  5. SYNTHROID [Concomitant]
  6. LOPRESSOR [Concomitant]
  7. NORVASC [Concomitant]

REACTIONS (2)
  - HAEMATOCHEZIA [None]
  - WEIGHT DECREASED [None]
